FAERS Safety Report 13789824 (Version 1)
Quarter: 2017Q3

REPORT INFORMATION
  Report Type: Spontaneous
  Country: US (occurrence: US)
  Receive Date: 20170725
  Receipt Date: 20170725
  Transmission Date: 20171127
  Serious: No
  Sender: FDA-Public Use
  Company Number: US-PFIZER INC-2017321927

PATIENT
  Sex: Female

DRUGS (4)
  1. METOPROLOL TARTRATE. [Suspect]
     Active Substance: METOPROLOL TARTRATE
     Dosage: 50 MG, 2X/DAY
  2. GABAPENTIN. [Suspect]
     Active Substance: GABAPENTIN
     Dosage: 600 MG, 3X/DAY
  3. ENALAPRIL MALEATE. [Suspect]
     Active Substance: ENALAPRIL MALEATE
     Dosage: 10 MG, DAILY
  4. XELJANZ XR [Suspect]
     Active Substance: TOFACITINIB CITRATE
     Dosage: 11 MG, UNK

REACTIONS (10)
  - Tenderness [Unknown]
  - Raynaud^s phenomenon [Unknown]
  - Erythema [Unknown]
  - Lacrimal gland enlargement [Unknown]
  - Depressed mood [Unknown]
  - Dry mouth [Unknown]
  - Dry eye [Unknown]
  - Anxiety [Unknown]
  - Butterfly rash [Unknown]
  - Periorbital oedema [Unknown]
